FAERS Safety Report 7068421-9 (Version None)
Quarter: 2010Q4

REPORT INFORMATION
  Report Type: 
  Country: None (occurrence: None)
  Receive Date: 20101028
  Receipt Date: 20101019
  Transmission Date: 20110411
  Serious: Yes (Other)
  Sender: FDA-Public Use
  Company Number: B0680796A

PATIENT
  Age: 30 Year

DRUGS (5)
  1. LAMIVUDINE [Suspect]
     Indication: HIV INFECTION
     Route: 065
     Dates: start: 20060101
  2. ZIDOVUDINE [Suspect]
     Indication: HIV INFECTION
     Route: 065
     Dates: start: 20060101
  3. NEVIRAPINE [Suspect]
     Indication: HIV INFECTION
     Route: 065
     Dates: start: 20060101
  4. ATAZANAVIR [Suspect]
     Indication: HIV INFECTION
     Route: 065
     Dates: end: 20070101
  5. RITONAVIR [Suspect]
     Indication: HIV INFECTION
     Route: 065
     Dates: end: 20070101

REACTIONS (11)
  - BASEDOW'S DISEASE [None]
  - BLOOD THYROID STIMULATING HORMONE DECREASED [None]
  - EXOPHTHALMOS [None]
  - GOITRE [None]
  - HEPATITIS [None]
  - HYPERTHYROIDISM [None]
  - INCREASED APPETITE [None]
  - TACHYCARDIA [None]
  - THYROXINE FREE INCREASED [None]
  - TREMOR [None]
  - WEIGHT DECREASED [None]
